FAERS Safety Report 19301779 (Version 1)
Quarter: 2021Q2

REPORT INFORMATION
  Report Type: Spontaneous
  Country: US (occurrence: US)
  Receive Date: 20210525
  Receipt Date: 20210525
  Transmission Date: 20210717
  Serious: Yes (Hospitalization)
  Sender: FDA-Public Use
  Company Number: None

PATIENT
  Age: 64 Year
  Sex: Female

DRUGS (6)
  1. AMLODIPINE [Concomitant]
     Active Substance: AMLODIPINE BESYLATE
  2. METOPROLOL. [Concomitant]
     Active Substance: METOPROLOL
  3. SALICYLIC ACID. [Concomitant]
     Active Substance: SALICYLIC ACID
  4. NEORAL [Suspect]
     Active Substance: CYCLOSPORINE
     Indication: HEART TRANSPLANT
     Dosage: ?          OTHER FREQUENCY:EVERY 12 HOURS;?
     Route: 048
     Dates: start: 20200302
  5. LISINOPRIL. [Concomitant]
     Active Substance: LISINOPRIL
  6. ZORTRESS [Concomitant]
     Active Substance: EVEROLIMUS

REACTIONS (2)
  - Contusion [None]
  - Upper limb fracture [None]

NARRATIVE: CASE EVENT DATE: 20210430
